FAERS Safety Report 15810353 (Version 1)
Quarter: 2019Q1

REPORT INFORMATION
  Report Type: Spontaneous
  Country: US (occurrence: US)
  Receive Date: 20190111
  Receipt Date: 20190111
  Transmission Date: 20190417
  Serious: No
  Sender: FDA-Public Use
  Company Number: US-ROCHE-2197999

PATIENT
  Sex: Female

DRUGS (6)
  1. HUMIRA [Concomitant]
     Active Substance: ADALIMUMAB
  2. ENBREL [Concomitant]
     Active Substance: ETANERCEPT
  3. METHOTREXATE ORAL [Concomitant]
     Active Substance: METHOTREXATE
  4. ORENCIA [Concomitant]
     Active Substance: ABATACEPT
  5. XELJANZ XR [Concomitant]
     Active Substance: TOFACITINIB CITRATE
     Route: 048
  6. RITUXAN [Suspect]
     Active Substance: RITUXIMAB
     Indication: RHEUMATOID ARTHRITIS
     Route: 065

REACTIONS (1)
  - Drug ineffective [Unknown]
